FAERS Safety Report 6087286-5 (Version None)
Quarter: 2009Q1

REPORT INFORMATION
  Report Type: 
  Country: None (occurrence: None)
  Receive Date: 20090223
  Receipt Date: 20090216
  Transmission Date: 20090719
  Serious: Yes (Hospitalization)
  Sender: FDA-Public Use
  Company Number: A0729285A

PATIENT
  Age: 68 Year
  Sex: Male
  Weight: 95.5 kg

DRUGS (9)
  1. AVANDIA [Suspect]
     Dosage: 8MG TWICE PER DAY
     Route: 048
     Dates: start: 20000101, end: 20060322
  2. MOBIC [Concomitant]
  3. LORTAB [Concomitant]
  4. ZYRTEC [Concomitant]
  5. ASPIRIN [Concomitant]
  6. GLUCOVANCE [Concomitant]
  7. TRICOR [Concomitant]
  8. STARLIX [Concomitant]
  9. ALTACE [Concomitant]

REACTIONS (4)
  - CARDIAC ANEURYSM [None]
  - CARDIAC FAILURE CONGESTIVE [None]
  - MYOCARDIAL INFARCTION [None]
  - MYOCARDIAL ISCHAEMIA [None]
